FAERS Safety Report 7528240-3 (Version None)
Quarter: 2011Q2

REPORT INFORMATION
  Report Type: 
  Country: None (occurrence: None)
  Receive Date: 20110607
  Receipt Date: 20101222
  Transmission Date: 20111010
  Serious: Yes (Other)
  Sender: FDA-Public Use
  Company Number: US-ASTRAZENECA-2010SE60319

PATIENT
  Age: 67 Year
  Sex: Female

DRUGS (2)
  1. PANTOPRAZOLE [Suspect]
  2. OMEPRAZOLE [Suspect]
     Route: 048

REACTIONS (1)
  - ANAPHYLACTIC REACTION [None]
